FAERS Safety Report 6985361-1 (Version None)
Quarter: 2010Q3

REPORT INFORMATION
  Report Type: 
  Country: None (occurrence: None)
  Receive Date: 20100915
  Receipt Date: 20100910
  Transmission Date: 20110219
  Serious: No
  Sender: FDA-Public Use
  Company Number: US-PFIZER INC-2010114872

PATIENT
  Sex: Male
  Weight: 86.168 kg

DRUGS (4)
  1. LIPITOR [Suspect]
     Indication: BLOOD CHOLESTEROL ABNORMAL
     Dosage: 10 MG DAILY
     Route: 048
     Dates: end: 20100823
  2. LISINOPRIL [Concomitant]
     Indication: BLOOD PRESSURE ABNORMAL
     Dosage: 20 MG DAILY
  3. CENTRUM SILVER [Concomitant]
     Indication: VITAMIN SUPPLEMENTATION
     Dosage: UNK
  4. ACETYLSALICYLIC ACID [Concomitant]
     Dosage: 83 MG DAILY

REACTIONS (1)
  - MYALGIA [None]
